FAERS Safety Report 9168049 (Version 1)
Quarter: 2013Q1

REPORT INFORMATION
  Report Type: Spontaneous
  Country: DE (occurrence: None)
  Receive Date: 20130305
  Receipt Date: 20130305
  Transmission Date: 20140127
  Serious: Yes (Congenital Anomaly)
  Sender: FDA-Public Use
  Company Number: AUR-APL-2013-01791

PATIENT
  Sex: Female
  Weight: 1.89 kg

DRUGS (6)
  1. METFORMIN [Suspect]
     Indication: POLYCYSTIC OVARIES
     Dosage: 1700 MG (850 MG, 2 IN 1 D), TRANSPLACENTAL
     Route: 064
  2. MELPERONE [Suspect]
     Indication: DEPRESSION
     Dosage: 200 MG, 1 D, TRANSPLACENTAL
     Route: 064
     Dates: start: 20111012
  3. VENLAFAXINE [Suspect]
     Indication: DEPRESSION
     Dosage: 300 MG, 1 D, TRANSPLACENTAL
     Route: 064
     Dates: start: 20111012
  4. FRAGMIN P FORTE (HEPARIN-FRACTION, SODIUM SALT) [Concomitant]
  5. KADEFUNGIN COMBI (CLOTRIMAZOLE) [Concomitant]
  6. FEMIBION (CALCIUM) [Concomitant]

REACTIONS (12)
  - Maternal drugs affecting foetus [None]
  - Premature baby [None]
  - Fallot^s tetralogy [None]
  - Anal atresia [None]
  - Congenital absence of bile ducts [None]
  - Persistent cloaca [None]
  - Congenital genital malformation female [None]
  - Spine malformation [None]
  - Congenital uterine anomaly [None]
  - Atrial septal defect [None]
  - Right aortic arch [None]
  - Persistent left superior vena cava [None]
